FAERS Safety Report 18927221 (Version 1)
Quarter: 2021Q1

REPORT INFORMATION
  Report Type: Spontaneous
  Country: US (occurrence: US)
  Receive Date: 20210222
  Receipt Date: 20210222
  Transmission Date: 20210420
  Serious: No
  Sender: FDA-Public Use
  Company Number: None

PATIENT
  Age: 64 Year
  Sex: Female
  Weight: 63 kg

DRUGS (21)
  1. TRAZODONE [Concomitant]
     Active Substance: TRAZODONE HYDROCHLORIDE
  2. LEVOTHYROXINE. [Concomitant]
     Active Substance: LEVOTHYROXINE
  3. MAGNESIUM OXIDE. [Concomitant]
     Active Substance: MAGNESIUM OXIDE
  4. BUSPIRONE [Concomitant]
     Active Substance: BUSPIRONE HYDROCHLORIDE
  5. DIPHENOLATE ATROP [Concomitant]
  6. ZINC. [Concomitant]
     Active Substance: ZINC
  7. VIT C W/ ROSE HIPS [Concomitant]
  8. BETA GLUCAN [Concomitant]
     Active Substance: BETA GLUCAN
  9. MILK THISTLE [Concomitant]
     Active Substance: DIETARY SUPPLEMENT\HERBALS\MILK THISTLE
  10. POTASSIUM [Concomitant]
     Active Substance: POTASSIUM
  11. CELECOXIB. [Concomitant]
     Active Substance: CELECOXIB
  12. TYLENOL [Concomitant]
     Active Substance: ACETAMINOPHEN
  13. CLOPIDOGREL [Concomitant]
     Active Substance: CLOPIDOGREL BISULFATE
  14. ACYCLOVIR. [Concomitant]
     Active Substance: ACYCLOVIR
  15. RESVERATROL (JAPANESE KNOTWEED) [Concomitant]
  16. L?LYSINE [Concomitant]
     Active Substance: LYSINE
  17. VENLAFAXINE CAPSULES [Suspect]
     Active Substance: VENLAFAXINE HYDROCHLORIDE
     Indication: DEPRESSION
     Dosage: ?          QUANTITY:1 CAPSULE(S);?
     Route: 048
  18. DICYCLOMINE [Concomitant]
     Active Substance: DICYCLOMINE HYDROCHLORIDE
  19. PRILOSEC ER [Concomitant]
  20. FLONASE [Concomitant]
     Active Substance: FLUTICASONE PROPIONATE
  21. VITAMIN D3 [Concomitant]
     Active Substance: CHOLECALCIFEROL

REACTIONS (10)
  - Ocular discomfort [None]
  - Cough [None]
  - Dizziness [None]
  - Cerebral disorder [None]
  - Muscle spasms [None]
  - Loss of personal independence in daily activities [None]
  - Withdrawal syndrome [None]
  - Visual impairment [None]
  - Headache [None]
  - Nausea [None]

NARRATIVE: CASE EVENT DATE: 20210110
